FAERS Safety Report 5960320-6 (Version None)
Quarter: 2008Q4

REPORT INFORMATION
  Report Type: 
  Country: None (occurrence: None)
  Receive Date: 20081120
  Receipt Date: 20081112
  Transmission Date: 20090506
  Serious: Yes (Hospitalization, Other)
  Sender: FDA-Public Use
  Company Number: KR-SANOFI-SYNTHELABO-F01200801712

PATIENT
  Sex: Male

DRUGS (19)
  1. TRIMETAZIDINE [Concomitant]
     Dosage: UNK
     Dates: start: 20081013
  2. NICORANDIL [Concomitant]
     Dosage: UNK
     Dates: start: 20080923
  3. BISOPROLOL FUMARATE [Concomitant]
     Dosage: UNK
     Dates: start: 20080923
  4. FUROSEMIDE [Concomitant]
     Dosage: UNK
     Dates: start: 20080828, end: 20080828
  5. VECURONIUM BROMIDE [Concomitant]
     Dosage: UNK
     Dates: start: 20080827, end: 20080827
  6. MIDAZOLAM HCL [Concomitant]
     Dosage: UNK
     Dates: start: 20080827, end: 20080827
  7. NOREPINEPHRINE [Concomitant]
     Dosage: UNK
     Dates: start: 20080827, end: 20080827
  8. TRANEXAMIC ACID [Concomitant]
     Dosage: UNK
     Dates: start: 20080830
  9. PANTOPRAZOLE SODIUM [Concomitant]
     Dosage: UNK
     Dates: start: 20080827, end: 20080829
  10. HYDROXYCHLOROQUINE SULFATE [Concomitant]
     Dosage: UNK
     Dates: start: 20080605, end: 20080825
  11. FOLIC ACID [Concomitant]
     Dosage: UNK
     Dates: start: 20080605, end: 20080825
  12. ISOSORBIDE [Concomitant]
     Dosage: UNK
     Dates: start: 20080605, end: 20080825
  13. DILTIAZEM HCL [Concomitant]
     Dosage: UNK
     Dates: start: 20080605, end: 20080825
  14. ASPIRIN [Concomitant]
     Dosage: UNK
     Dates: start: 20080605
  15. DEXAMETHASONE [Concomitant]
     Dosage: UNK
     Dates: start: 20080821, end: 20080823
  16. GRANISETRON [Concomitant]
     Dosage: UNK
     Dates: start: 20080821, end: 20080823
  17. METOCLOPRAMIDE [Concomitant]
     Dosage: UNK
     Dates: start: 20080821, end: 20080825
  18. CAPECITABINE [Suspect]
     Route: 048
  19. OXALIPLATIN [Suspect]
     Indication: GASTRIC CANCER
     Route: 041

REACTIONS (7)
  - ABSCESS [None]
  - DISSEMINATED INTRAVASCULAR COAGULATION [None]
  - INFECTION [None]
  - PNEUMONIA NECROTISING [None]
  - PULMONARY HAEMORRHAGE [None]
  - PYREXIA [None]
  - RESPIRATORY ACIDOSIS [None]
